FAERS Safety Report 19942290 (Version 1)
Quarter: 2021Q4

REPORT INFORMATION
  Report Type: Spontaneous
  Country: US (occurrence: US)
  Receive Date: 20211011
  Receipt Date: 20211011
  Transmission Date: 20220303
  Serious: Yes (Disabling)
  Sender: FDA-Public Use
  Company Number: None

PATIENT
  Age: 68 Year
  Sex: Male
  Weight: 92.8 kg

DRUGS (7)
  1. BARICITINIB [Suspect]
     Active Substance: BARICITINIB
     Indication: COVID-19
     Route: 048
     Dates: start: 20210929, end: 20211011
  2. dexamethasone 6 mg daily [Concomitant]
     Dates: start: 20210923, end: 20211002
  3. enoxaparin 40 mg daily [Concomitant]
     Dates: start: 20210924, end: 20210928
  4. remdesivir 200 mg x 1, then 100 mg daily [Concomitant]
     Dates: start: 20210926, end: 20210930
  5. enoxaparin 40 mg BID [Concomitant]
     Dates: start: 20210928, end: 20211007
  6. enoxaparin 100 mg BID [Concomitant]
     Dates: start: 20211007
  7. methylprednisolone 40 mg Q4H [Concomitant]
     Dates: start: 20211007, end: 20211008

REACTIONS (1)
  - Cerebrovascular accident [None]

NARRATIVE: CASE EVENT DATE: 20211008
